FAERS Safety Report 25978500 (Version 1)
Quarter: 2025Q4

REPORT INFORMATION
  Report Type: Spontaneous
  Country: CN (occurrence: CN)
  Receive Date: 20251030
  Receipt Date: 20251030
  Transmission Date: 20260117
  Serious: Yes (Other)
  Sender: Onesource Specialty Pharma
  Company Number: CN-STRIDES ARCOLAB LIMITED-2025OS001063

PATIENT
  Sex: Male

DRUGS (2)
  1. GANCICLOVIR SODIUM [Suspect]
     Active Substance: GANCICLOVIR SODIUM
     Indication: Cytomegalovirus chorioretinitis
     Dosage: 2.5 MG/0.05 ML
  2. GANCICLOVIR SODIUM [Suspect]
     Active Substance: GANCICLOVIR SODIUM
     Dosage: UNK
     Route: 042

REACTIONS (5)
  - Retinal toxicity [None]
  - Subretinal fluid [None]
  - Retinal disorder [None]
  - Visual impairment [None]
  - Off label use [Unknown]
